FAERS Safety Report 5701150-X (Version None)
Quarter: 2008Q2

REPORT INFORMATION
  Report Type: 
  Country: None (occurrence: None)
  Receive Date: 20080410
  Receipt Date: 20080328
  Transmission Date: 20081010
  Serious: Yes (Hospitalization)
  Sender: FDA-Public Use
  Company Number: US-AMGEN-QUU271880

PATIENT
  Sex: Male

DRUGS (1)
  1. ARANESP [Suspect]
     Indication: ANAEMIA
     Route: 058

REACTIONS (4)
  - FUNGAL INFECTION [None]
  - GASTROINTESTINAL ANASTOMOTIC LEAK [None]
  - JAUNDICE [None]
  - OESOPHAGEAL RUPTURE [None]
